FAERS Safety Report 5538184-4 (Version None)
Quarter: 2007Q4

REPORT INFORMATION
  Report Type: 
  Country: None (occurrence: None)
  Receive Date: 20071207
  Receipt Date: 20071127
  Transmission Date: 20080405
  Serious: Yes (Other)
  Sender: FDA-Public Use
  Company Number: FR-PFIZER INC-2007101689

PATIENT
  Sex: Female

DRUGS (1)
  1. CHAMPIX [Suspect]
     Indication: SMOKING CESSATION THERAPY

REACTIONS (8)
  - AGGRESSION [None]
  - BIPOLAR DISORDER [None]
  - CRYING [None]
  - DEPRESSION [None]
  - EUPHORIC MOOD [None]
  - HYPERTONIA [None]
  - NAUSEA [None]
  - STRESS [None]
